FAERS Safety Report 4742491-2 (Version None)
Quarter: 2005Q3

REPORT INFORMATION
  Report Type: 
  Country: None (occurrence: None)
  Receive Date: 20050811
  Receipt Date: 20050407
  Transmission Date: 20060218
  Serious: Yes (Other)
  Sender: FDA-Public Use
  Company Number: 200512932US

PATIENT
  Sex: Female

DRUGS (3)
  1. KETEK [Suspect]
     Dosage: DOSE: UNKNOWN
  2. ZITHROMAX [Concomitant]
     Dosage: DOSE: UNK
  3. LEVAQUIN [Concomitant]
     Dosage: DOSE: UNK

REACTIONS (1)
  - STEVENS-JOHNSON SYNDROME [None]
